FAERS Safety Report 12904197 (Version 1)
Quarter: 2016Q4

REPORT INFORMATION
  Report Type: Spontaneous
  Country: US (occurrence: US)
  Receive Date: 20161101
  Receipt Date: 20161101
  Transmission Date: 20170207
  Serious: No
  Sender: FDA-Public Use
  Company Number: None

PATIENT
  Age: 65 Year
  Sex: Male
  Weight: 93.16 kg

DRUGS (2)
  1. LENALIDOMIDE(CC-5013) [Suspect]
     Active Substance: LENALIDOMIDE
     Dates: end: 20150812
  2. RITUXIMAB (MOAB C2B8 ANTI CD20, CHIMERIC) [Suspect]
     Active Substance: RITUXIMAB
     Dates: end: 20150708

REACTIONS (3)
  - Malignant melanoma in situ [None]
  - Therapy change [None]
  - Rash [None]

NARRATIVE: CASE EVENT DATE: 20150713
